FAERS Safety Report 7910321-3 (Version None)
Quarter: 2011Q4

REPORT INFORMATION
  Report Type: 
  Country: None (occurrence: None)
  Receive Date: 20111111
  Receipt Date: 20111107
  Transmission Date: 20120403
  Serious: Yes (Death)
  Sender: FDA-Public Use
  Company Number: JP-JNJFOC-20110902556

PATIENT
  Sex: Female
  Weight: 51 kg

DRUGS (16)
  1. GOLIMUMAB [Suspect]
     Indication: RHEUMATOID ARTHRITIS
     Route: 058
     Dates: start: 20090430, end: 20110728
  2. KETOPROFEN [Concomitant]
     Route: 061
     Dates: start: 20110107
  3. PASTARON [Concomitant]
     Route: 061
  4. LORCAM [Concomitant]
     Indication: RHEUMATOID ARTHRITIS
     Route: 048
     Dates: end: 20101209
  5. SUCRALFATE [Concomitant]
     Route: 048
     Dates: start: 20110107
  6. KETOPROFEN [Concomitant]
     Indication: RHEUMATOID ARTHRITIS
     Route: 061
     Dates: end: 20101209
  7. PLETAL [Suspect]
     Route: 048
     Dates: start: 20101211, end: 20110829
  8. CLOSTRIDIUM BUTYRICUM [Concomitant]
     Route: 048
     Dates: start: 20110728, end: 20110817
  9. ZOLPIDEM [Concomitant]
     Indication: INSOMNIA
     Route: 048
     Dates: start: 20101209, end: 20110829
  10. SUCRALFATE [Concomitant]
     Indication: PROPHYLAXIS AGAINST GASTROINTESTINAL ULCER
     Route: 048
     Dates: end: 20101209
  11. FERROUS FUMARATE [Concomitant]
     Indication: ANAEMIA
     Route: 048
     Dates: start: 20110728
  12. PLETAL [Suspect]
     Indication: PROPHYLAXIS
     Route: 048
     Dates: start: 20101206, end: 20101210
  13. LORCAM [Concomitant]
     Route: 048
     Dates: start: 20110107
  14. DILTIAZEM HCL [Concomitant]
     Indication: HYPERTENSION
     Route: 048
     Dates: start: 20101211, end: 20110829
  15. RINDERON-VG [Concomitant]
     Route: 061
  16. SULFASALAZINE [Concomitant]
     Route: 065

REACTIONS (1)
  - BRAIN STEM HAEMORRHAGE [None]
